FAERS Safety Report 24866785 (Version 1)
Quarter: 2025Q1

REPORT INFORMATION
  Report Type: Report from Study
  Country: GB (occurrence: GB)
  Receive Date: 20250121
  Receipt Date: 20250121
  Transmission Date: 20250409
  Serious: Yes (Other)
  Sender: ALEXION PHARMACEUTICALS
  Company Number: GB-AstraZeneca-CH-00788220A

PATIENT
  Age: 69 Year

DRUGS (1)
  1. TAGRISSO [Suspect]
     Active Substance: OSIMERTINIB
     Indication: Non-small cell lung cancer stage II
     Dosage: 80 MILLIGRAM, QD

REACTIONS (7)
  - Fatigue [Not Recovered/Not Resolved]
  - Tanning [Not Recovered/Not Resolved]
  - Nail disorder [Not Recovered/Not Resolved]
  - Diarrhoea [Not Recovered/Not Resolved]
  - Pharyngeal abscess [Recovered/Resolved]
  - Hair texture abnormal [Not Recovered/Not Resolved]
  - Erythema dyschromicum perstans [Not Recovered/Not Resolved]
